FAERS Safety Report 20503750 (Version 1)
Quarter: 2022Q1

REPORT INFORMATION
  Report Type: Spontaneous
  Country: US (occurrence: US)
  Receive Date: 20220222
  Receipt Date: 20220222
  Transmission Date: 20220423
  Serious: No
  Sender: FDA-Public Use
  Company Number: US-TAKEDA-2022TUS010458

PATIENT
  Sex: Male
  Weight: 32 kg

DRUGS (3)
  1. PENTASA [Suspect]
     Active Substance: MESALAMINE
     Indication: Crohn^s disease
     Dosage: 1500 MILLIGRAM, QD
     Route: 065
     Dates: start: 202011
  2. ENTOCORT [Concomitant]
     Active Substance: BUDESONIDE
     Indication: Steroid therapy
     Dosage: UNK
     Dates: start: 202011, end: 202108
  3. SOMATROPIN [Concomitant]
     Active Substance: SOMATROPIN
     Indication: Product used for unknown indication

REACTIONS (2)
  - Food allergy [Unknown]
  - Inflammation [Recovering/Resolving]
